FAERS Safety Report 7926726-0 (Version None)
Quarter: 2011Q4

REPORT INFORMATION
  Report Type: 
  Country: None (occurrence: None)
  Receive Date: 20111118
  Receipt Date: 20111109
  Transmission Date: 20120403
  Serious: Yes (Other)
  Sender: FDA-Public Use
  Company Number: CA-JNJFOC-20111105052

PATIENT
  Sex: Male

DRUGS (2)
  1. REMICADE [Suspect]
     Indication: COLITIS ULCERATIVE
     Route: 042
  2. MORPHINE [Concomitant]
     Indication: PAIN
     Route: 065

REACTIONS (3)
  - PYREXIA [None]
  - HYPERHIDROSIS [None]
  - ACCIDENT [None]
